FAERS Safety Report 5800642-2 (Version None)
Quarter: 2008Q3

REPORT INFORMATION
  Report Type: 
  Country: None (occurrence: None)
  Receive Date: 20080702
  Receipt Date: 20080702
  Transmission Date: 20090109
  Serious: Yes (Hospitalization)
  Sender: FDA-Public Use
  Company Number: None

PATIENT
  Age: 50 Year
  Sex: Male

DRUGS (1)
  1. PROPOFOL [Suspect]
     Dosage: 180 MG PER HOUR IV
     Route: 042
     Dates: start: 20080626, end: 20080630

REACTIONS (1)
  - HYPERTRIGLYCERIDAEMIA [None]
